FAERS Safety Report 20025762 (Version 2)
Quarter: 2021Q4

REPORT INFORMATION
  Report Type: Report from Study
  Country: FR (occurrence: FR)
  Receive Date: 20211102
  Receipt Date: 20211214
  Transmission Date: 20220303
  Serious: Yes (Death, Other)
  Sender: FDA-Public Use
  Company Number: FR-AMGEN-FRANI2021169930

PATIENT
  Age: 61 Year
  Sex: Female

DRUGS (2)
  1. AMG-510 [Suspect]
     Active Substance: AMG-510
     Indication: Non-small cell lung cancer metastatic
     Dosage: 960 MILLIGRAM, QD
     Dates: start: 20210817, end: 20210831
  2. AMG-510 [Suspect]
     Active Substance: AMG-510
     Indication: K-ras gene mutation

REACTIONS (2)
  - Metastases to liver [Fatal]
  - Parotitis [Recovered/Resolved]

NARRATIVE: CASE EVENT DATE: 20210821
